FAERS Safety Report 8392005-3 (Version None)
Quarter: 2012Q2

REPORT INFORMATION
  Report Type: 
  Country: None (occurrence: None)
  Receive Date: 20120525
  Receipt Date: 20120525
  Transmission Date: 20120825
  Serious: Yes (Disabling)
  Sender: FDA-Public Use
  Company Number: None

PATIENT
  Age: 58 Year
  Sex: Male
  Weight: 113.3993 kg

DRUGS (4)
  1. VENTOLIN HFA [Suspect]
     Indication: DYSPNOEA
     Dosage: 2 PUFFS EVERY (4) HOURS
     Dates: start: 20110401, end: 20120414
  2. VENTOLIN HFA [Suspect]
     Indication: WHEEZING
     Dosage: 2 PUFFS EVERY (4) HOURS
     Dates: start: 20110401, end: 20120414
  3. AZITHROMYCIN [Suspect]
     Indication: BRONCHITIS
     Dosage: START DAY (1) (2) TABS 1 TAB 2-5 DAYS
     Dates: start: 20110401, end: 20120414
  4. AZITHROMYCIN [Suspect]
     Indication: INFECTION
     Dosage: START DAY (1) (2) TABS 1 TAB 2-5 DAYS
     Dates: start: 20110401, end: 20120414

REACTIONS (2)
  - ANOSMIA [None]
  - AGEUSIA [None]
